FAERS Safety Report 24759251 (Version 1)
Quarter: 2024Q4

REPORT INFORMATION
  Report Type: Spontaneous
  Country: CN (occurrence: CN)
  Receive Date: 20241220
  Receipt Date: 20241220
  Transmission Date: 20250115
  Serious: Yes (Other)
  Sender: RANBAXY
  Company Number: CN-SUN PHARMACEUTICAL INDUSTRIES LTD-2024R1-485777

PATIENT
  Age: 62 Year
  Sex: Male

DRUGS (3)
  1. OXALIPLATIN [Suspect]
     Active Substance: OXALIPLATIN
     Indication: Gastric cancer
     Dosage: 130 MILLIGRAM/SQ. METER DAY 1 OF EACH CYCLE
     Route: 042
  2. TISLELIZUMAB [Suspect]
     Active Substance: TISLELIZUMAB
     Indication: Gastric cancer
     Dosage: 200 MILLIGRAM, QD EVERY 21 DAYS,
     Route: 065
  3. TS-1 [Suspect]
     Active Substance: GIMERACIL\OTERACIL POTASSIUM\TEGAFUR
     Indication: Gastric cancer
     Dosage: 40 MILLIGRAM/SQ. METER, BID
     Route: 048

REACTIONS (3)
  - Therapy partial responder [Unknown]
  - Fatigue [Recovering/Resolving]
  - Nausea [Recovering/Resolving]
